FAERS Safety Report 5734069-9 (Version None)
Quarter: 2008Q2

REPORT INFORMATION
  Report Type: 
  Country: None (occurrence: None)
  Receive Date: 20080509
  Receipt Date: 20080429
  Transmission Date: 20081010
  Serious: Yes (Other)
  Sender: FDA-Public Use
  Company Number: AU-PFIZER INC-2008038513

PATIENT
  Sex: Male

DRUGS (5)
  1. DILANTIN [Suspect]
  2. VALPRO [Concomitant]
  3. CODEINE SUL TAB [Concomitant]
     Indication: MIGRAINE
  4. DOXYLAMINE SUCCINATE [Concomitant]
     Indication: MIGRAINE
  5. ACETAMINOPHEN [Concomitant]
     Indication: MIGRAINE

REACTIONS (6)
  - DRUG WITHDRAWAL SYNDROME [None]
  - HALLUCINATION, VISUAL [None]
  - HYPOAESTHESIA [None]
  - INSOMNIA [None]
  - MIGRAINE [None]
  - NERVOUSNESS [None]
